FAERS Safety Report 23641939 (Version 1)
Quarter: 2024Q1

REPORT INFORMATION
  Report Type: Other
  Country: IN (occurrence: None)
  Receive Date: 20240318
  Receipt Date: 20240318
  Transmission Date: 20240410
  Serious: Yes (Death, Hospitalization)
  Sender: FDA-Public Use
  Company Number: IN-ROCHE-3384653

PATIENT
  Age: 63 Year
  Sex: Female

DRUGS (1)
  1. KADCYLA [Suspect]
     Active Substance: ADO-TRASTUZUMAB EMTANSINE
     Indication: Breast cancer metastatic
     Route: 042
     Dates: start: 20230221

REACTIONS (3)
  - Thrombocytopenia [Unknown]
  - Disease progression [Fatal]
  - Drug ineffective [Unknown]
